FAERS Safety Report 8849245 (Version 2)
Quarter: 2012Q4

REPORT INFORMATION
  Report Type: 
  Country: US (occurrence: US)
  Receive Date: 20121019
  Receipt Date: 20121108
  Transmission Date: 20130627
  Serious: No
  Sender: FDA-Public Use
  Company Number: US-JNJFOC-20121007027

PATIENT
  Sex: Male
  Weight: 78.02 kg

DRUGS (7)
  1. SANDOZ FENTANYL TRANSDERMAL SYSTEM [Suspect]
     Indication: FIBROMYALGIA
     Route: 062
  2. SANDOZ FENTANYL TRANSDERMAL SYSTEM [Suspect]
     Indication: FIBROMYALGIA
     Route: 062
     Dates: start: 2010
  3. PERCOCET [Concomitant]
     Indication: BREAKTHROUGH PAIN
     Dosage: 10/325/4 times a day
     Route: 048
  4. FLEXERIL [Concomitant]
     Indication: MUSCLE RELAXANT THERAPY
     Dosage: as necessary
     Route: 048
  5. LIPITOR [Concomitant]
     Indication: BLOOD CHOLESTEROL
     Dosage: 20 mg every other day
     Route: 048
  6. LIPITOR [Concomitant]
     Indication: BLOOD CHOLESTEROL
     Dosage: 20mg/ half tablet every other day
     Route: 048
  7. NITROGLYCERINE [Concomitant]
     Indication: CHEST PAIN
     Dosage: as needed
     Route: 048

REACTIONS (6)
  - Feeling abnormal [Recovered/Resolved]
  - Incorrect drug administration duration [Not Recovered/Not Resolved]
  - Drug effect increased [Recovered/Resolved]
  - Malaise [Recovered/Resolved]
  - Headache [Recovered/Resolved]
  - Impaired work ability [Recovered/Resolved]
